FAERS Safety Report 15793678 (Version 3)
Quarter: 2019Q1

REPORT INFORMATION
  Report Type: Spontaneous
  Country: CA (occurrence: CA)
  Receive Date: 20190107
  Receipt Date: 20190114
  Transmission Date: 20190417
  Serious: Yes (Other)
  Sender: FDA-Public Use
  Company Number: CA-PFIZER INC-2018484668

PATIENT
  Age: 40 Year
  Sex: Female

DRUGS (3)
  1. XELJANZ [Suspect]
     Active Substance: TOFACITINIB CITRATE
     Indication: COLITIS ULCERATIVE
     Dosage: 10 MG, 2X/DAY
     Route: 048
     Dates: start: 20181115
  2. PREDNISONE. [Concomitant]
     Active Substance: PREDNISONE
     Dosage: 1 DF, UNK
     Route: 065
     Dates: end: 20181217
  3. PREDNISONE. [Concomitant]
     Active Substance: PREDNISONE
     Dosage: 6 DF, DAILY (TAPERING BY 1 PILL/WEEK EVERY WEDNESDAY)

REACTIONS (6)
  - Haematochezia [Recovering/Resolving]
  - Headache [Unknown]
  - Condition aggravated [Unknown]
  - Frequent bowel movements [Unknown]
  - Anorectal discomfort [Unknown]
  - Defaecation urgency [Not Recovered/Not Resolved]

NARRATIVE: CASE EVENT DATE: 201811
